FAERS Safety Report 6555475-9 (Version None)
Quarter: 2010Q1

REPORT INFORMATION
  Report Type: 
  Country: None (occurrence: None)
  Receive Date: 20100128
  Receipt Date: 20100121
  Transmission Date: 20100710
  Serious: No
  Sender: FDA-Public Use
  Company Number: US-B.I. PHARMACEUTICALS,INC./RIDGEFIELD-2010-BP-00844BP

PATIENT
  Sex: Male

DRUGS (10)
  1. SPIRIVA [Suspect]
     Indication: CHRONIC OBSTRUCTIVE PULMONARY DISEASE
     Dosage: 18 MCG
     Route: 055
     Dates: start: 20091001
  2. NORVASC [Suspect]
     Indication: HYPERTENSION
     Dates: end: 20091201
  3. MODOPROST [Concomitant]
     Indication: PROSTATOMEGALY
  4. ASPIRIN [Concomitant]
     Indication: PROPHYLAXIS
  5. VITAMINS [Concomitant]
     Indication: PROPHYLAXIS
  6. TENORMIN [Concomitant]
     Indication: HYPERTENSION
  7. PROSCAR [Concomitant]
     Indication: PROSTATOMEGALY
  8. XOPENEX [Concomitant]
     Indication: CHRONIC OBSTRUCTIVE PULMONARY DISEASE
  9. NITROGLYCERIN [Concomitant]
     Indication: MYOCARDIAL INFARCTION
  10. MICARDIS [Concomitant]
     Indication: HYPERTENSION

REACTIONS (1)
  - OEDEMA PERIPHERAL [None]
